FAERS Safety Report 9057986 (Version 1)
Quarter: 2013Q1

REPORT INFORMATION
  Report Type: Spontaneous
  Country: US (occurrence: None)
  Receive Date: 20130204
  Receipt Date: 20130204
  Transmission Date: 20140127
  Serious: Yes (Hospitalization)
  Sender: FDA-Public Use
  Company Number: None

PATIENT
  Age: 16 Year
  Sex: Male
  Weight: 93 kg

DRUGS (1)
  1. BACITRACIN [Suspect]
     Indication: WOUND TREATMENT
     Dates: start: 20130113, end: 20130113

REACTIONS (4)
  - Wheezing [None]
  - Hypotension [None]
  - Erythema [None]
  - Rash [None]
